FAERS Safety Report 12625330 (Version 1)
Quarter: 2016Q3

REPORT INFORMATION
  Report Type: Spontaneous
  Country: US (occurrence: US)
  Receive Date: 20160805
  Receipt Date: 20160805
  Transmission Date: 20161109
  Serious: No
  Sender: FDA-Public Use
  Company Number: US-LYNE LABORATORIES INC.-1055905

PATIENT
  Age: 66 Year
  Sex: Female
  Weight: 68.18 kg

DRUGS (1)
  1. TRIAMCINOLONE ACETONIDE. [Suspect]
     Active Substance: TRIAMCINOLONE ACETONIDE
     Indication: COMPULSIVE CHEEK BITING
     Route: 061
     Dates: start: 20150820, end: 20150820

REACTIONS (4)
  - Skin induration [None]
  - Adverse reaction [Recovered/Resolved]
  - Swelling face [None]
  - Salivary hypersecretion [None]

NARRATIVE: CASE EVENT DATE: 20150910
